FAERS Safety Report 14270345 (Version 1)
Quarter: 2017Q4

REPORT INFORMATION
  Report Type: Spontaneous
  Country: US (occurrence: US)
  Receive Date: 20171211
  Receipt Date: 20171211
  Transmission Date: 20180321
  Serious: Yes (Hospitalization, Other)
  Sender: FDA-Public Use
  Company Number: US-OTSUKA-2017_017628

PATIENT
  Sex: Female

DRUGS (2)
  1. ABILIFY [Suspect]
     Active Substance: ARIPIPRAZOLE
     Indication: SCHIZOPHRENIA
     Dosage: 10 MG, UNK
     Route: 065
     Dates: start: 20080702
  2. ABILIFY [Suspect]
     Active Substance: ARIPIPRAZOLE
     Indication: MAJOR DEPRESSION
     Dosage: 15 MG, UNK
     Route: 065
     Dates: end: 20160306

REACTIONS (8)
  - Obsessive-compulsive disorder [Unknown]
  - Impulsive behaviour [Unknown]
  - Suicide attempt [Unknown]
  - Suicidal ideation [Unknown]
  - Pain [Unknown]
  - Emotional distress [Unknown]
  - Gambling [Unknown]
  - Anxiety [Unknown]
